FAERS Safety Report 5036159-5 (Version None)
Quarter: 2006Q2

REPORT INFORMATION
  Report Type: 
  Country: None (occurrence: None)
  Receive Date: 20060531
  Receipt Date: 20060418
  Transmission Date: 20061013
  Serious: No
  Sender: FDA-Public Use
  Company Number: PHEH2006US02820

PATIENT
  Age: 74 Year
  Sex: Female

DRUGS (1)
  1. EXJADE [Suspect]
     Indication: BLOOD IRON INCREASED
     Dosage: 1500 MG QD ORAL
     Route: 048
     Dates: start: 20060208, end: 20060320

REACTIONS (3)
  - DIARRHOEA [None]
  - DYSPEPSIA [None]
  - VISION BLURRED [None]
